FAERS Safety Report 11842123 (Version 1)
Quarter: 2015Q4

REPORT INFORMATION
  Report Type: Spontaneous
  Country: US (occurrence: US)
  Receive Date: 20151216
  Receipt Date: 20151216
  Transmission Date: 20160305
  Serious: No
  Sender: FDA-Public Use
  Company Number: US-RB-073531-15

PATIENT
  Age: 7 Year
  Sex: Male
  Weight: 24.94 kg

DRUGS (2)
  1. DELSYM [Suspect]
     Active Substance: DEXTROMETHORPHAN
     Dosage: 10ML. ,FREQUENCY UNK
     Route: 065
     Dates: start: 20150209
  2. DELSYM [Suspect]
     Active Substance: DEXTROMETHORPHAN
     Indication: PRODUCT USED FOR UNKNOWN INDICATION
     Dosage: 5ML. DOSING UNKNOWN,FREQUENCY UNK
     Route: 065
     Dates: start: 20150208

REACTIONS (3)
  - Accidental overdose [Unknown]
  - No adverse event [Unknown]
  - Drug administered to patient of inappropriate age [None]

NARRATIVE: CASE EVENT DATE: 20150209
